FAERS Safety Report 9454306 (Version 1)
Quarter: 2013Q3

REPORT INFORMATION
  Report Type: Spontaneous
  Country: US (occurrence: None)
  Receive Date: 20130809
  Receipt Date: 20130809
  Transmission Date: 20140515
  Serious: No
  Sender: FDA-Public Use
  Company Number: None

PATIENT
  Age: 14 Year
  Sex: Male
  Weight: 61 kg

DRUGS (1)
  1. NAFCILLIN [Suspect]
     Indication: ANTIBIOTIC PROPHYLAXIS
     Dosage: 2 GRAMS QID INTRAVENOUS
     Route: 042
     Dates: start: 20130715, end: 20130722

REACTIONS (3)
  - Rash [None]
  - Swollen tongue [None]
  - Rash [None]
